FAERS Safety Report 8552955-1 (Version None)
Quarter: 2012Q3

REPORT INFORMATION
  Report Type: 
  Country: None (occurrence: None)
  Receive Date: 20120731
  Receipt Date: 20120730
  Transmission Date: 20120928
  Serious: Yes (Death, Other)
  Sender: FDA-Public Use
  Company Number: PHHY2011TH107001

PATIENT
  Sex: Male

DRUGS (2)
  1. CASODEX [Concomitant]
  2. ZOMETA [Suspect]
     Indication: METASTASES TO BONE
     Dosage: 4 MG, QMO
     Route: 042
     Dates: start: 20071001, end: 20091101

REACTIONS (3)
  - DEATH [None]
  - OSTEONECROSIS OF JAW [None]
  - PAIN [None]
